FAERS Safety Report 5166658-7 (Version None)
Quarter: 2006Q4

REPORT INFORMATION
  Report Type: 
  Country: None (occurrence: None)
  Receive Date: 20061130
  Receipt Date: 20061130
  Transmission Date: 20070319
  Serious: Yes (Other)
  Sender: FDA-Public Use
  Company Number: None

PATIENT
  Age: 28 Year
  Sex: Female

DRUGS (5)
  1. ALDOMET [Suspect]
     Dates: start: 20050717, end: 20051005
  2. MULTI-VITAMIN [Concomitant]
  3. HEPARIN [Concomitant]
  4. ANTIBIOTICS [Concomitant]
  5. CIPROFLOXACIN [Concomitant]

REACTIONS (13)
  - AUTOIMMUNE HEPATITIS [None]
  - CHOLECYSTITIS ACUTE [None]
  - CHOLELITHIASIS [None]
  - EXCORIATION [None]
  - HEADACHE [None]
  - HEPATIC STEATOSIS [None]
  - HEPATIC TRAUMA [None]
  - HEPATITIS [None]
  - HEPATOMEGALY [None]
  - HEPATOTOXICITY [None]
  - SKIN STRIAE [None]
  - THROMBOPHLEBITIS SEPTIC [None]
  - WHITE BLOOD CELL COUNT ABNORMAL [None]
